FAERS Safety Report 17012220 (Version 1)
Quarter: 2019Q4

REPORT INFORMATION
  Report Type: Spontaneous
  Country: JP (occurrence: JP)
  Receive Date: 20191108
  Receipt Date: 20191108
  Transmission Date: 20200122
  Serious: Yes (Death)
  Sender: FDA-Public Use
  Company Number: JP-CELGENEUS-JPN-20190708814

PATIENT
  Age: 68 Year
  Sex: Male

DRUGS (2)
  1. REVLIMID [Suspect]
     Active Substance: LENALIDOMIDE
     Indication: OFF LABEL USE
     Route: 048
  2. REVLIMID [Suspect]
     Active Substance: LENALIDOMIDE
     Indication: ADULT T-CELL LYMPHOMA/LEUKAEMIA
     Dosage: UNKNOWN
     Route: 048

REACTIONS (3)
  - Infection [Fatal]
  - Renal impairment [Not Recovered/Not Resolved]
  - Adult T-cell lymphoma/leukaemia [Fatal]

NARRATIVE: CASE EVENT DATE: 201908
